FAERS Safety Report 5028749-0 (Version None)
Quarter: 2006Q2

REPORT INFORMATION
  Report Type: 
  Country: None (occurrence: None)
  Receive Date: 20060619
  Receipt Date: 20060503
  Transmission Date: 20061013
  Serious: No
  Sender: FDA-Public Use
  Company Number: US-BRISTOL-MYERS SQUIBB COMPANY-13365614

PATIENT
  Age: 79 Year
  Sex: Female

DRUGS (1)
  1. BARACLUDE [Suspect]
     Indication: HEPATITIS B
     Dosage: THERAPY: START NOV OR DEC-2005
     Dates: start: 20050101

REACTIONS (2)
  - ABDOMINAL PAIN [None]
  - DIARRHOEA [None]
